FAERS Safety Report 9405369 (Version 3)
Quarter: 2013Q4

REPORT INFORMATION
  Report Type: Spontaneous
  Country: GB (occurrence: GB)
  Receive Date: 20130717
  Receipt Date: 20131125
  Transmission Date: 20140711
  Serious: Yes (Hospitalization)
  Sender: FDA-Public Use
  Company Number: GB-WATSON-2013-12487

PATIENT
  Age: 26 Year
  Sex: Male

DRUGS (4)
  1. RISPERIDONE [Suspect]
     Indication: PRODUCT USED FOR UNKNOWN INDICATION
     Dosage: 8 MG, UNKNOWN; TAPERED OFF IN MARCH /APRIL 2013
     Route: 048
     Dates: end: 2013
  2. XEPLION /05724802/ [Suspect]
     Indication: SCHIZOPHRENIA
     Dosage: 75 MG, 1 MONTHS
     Route: 030
  3. XEPLION /05724802/ [Suspect]
     Dosage: 150 MG, UNKNOWN
     Route: 030
  4. XEPLION /05724802/ [Suspect]
     Dosage: 100 MG, UNKNOWN
     Route: 030
     Dates: start: 20130227

REACTIONS (4)
  - Type 1 diabetes mellitus [Unknown]
  - Chest pain [Unknown]
  - Hypertension [Unknown]
  - Weight increased [Unknown]
